FAERS Safety Report 23317474 (Version 1)
Quarter: 2023Q4

REPORT INFORMATION
  Report Type: Spontaneous
  Country: US (occurrence: None)
  Receive Date: 20231219
  Receipt Date: 20231219
  Transmission Date: 20240109
  Serious: No
  Sender: FDA-Public Use
  Company Number: US-ROCHE-3319871

PATIENT
  Sex: Male

DRUGS (1)
  1. HEMLIBRA [Suspect]
     Active Substance: EMICIZUMAB-KXWH
     Indication: Factor VIII deficiency
     Dosage: 2.42 ML; 315 MG(STRENGTH: 105MG/0.7 ML), 40 MG (STRENGTH: 60MG/0.4ML)
     Route: 058
     Dates: start: 201810

REACTIONS (1)
  - Contusion [Unknown]
